FAERS Safety Report 8089525-8 (Version None)
Quarter: 2012Q1

REPORT INFORMATION
  Report Type: 
  Country: None (occurrence: None)
  Receive Date: 20120128
  Receipt Date: 20110712
  Transmission Date: 20120608
  Serious: No
  Sender: FDA-Public Use
  Company Number: US-ABBOTT-11P-163-0838421-00

PATIENT
  Age: 26 Year
  Sex: Female

DRUGS (3)
  1. ZYRTEC [Concomitant]
     Indication: SEASONAL ALLERGY
  2. SYNTHROID [Concomitant]
     Indication: HYPOTHYROIDISM
  3. HUMIRA [Suspect]
     Indication: PSORIATIC ARTHROPATHY
     Dates: start: 20110707

REACTIONS (2)
  - LIP SWELLING [None]
  - OROPHARYNGEAL PAIN [None]
